FAERS Safety Report 11547062 (Version 1)
Quarter: 2015Q3

REPORT INFORMATION
  Report Type: Spontaneous
  Country: US (occurrence: US)
  Receive Date: 20150924
  Receipt Date: 20150924
  Transmission Date: 20151125
  Serious: Yes (Other)
  Sender: FDA-Public Use
  Company Number: US-JNJFOC-20150915071

PATIENT
  Age: 55 Year
  Sex: Female

DRUGS (2)
  1. XARELTO [Suspect]
     Active Substance: RIVAROXABAN
     Indication: PROPHYLAXIS
     Route: 048
  2. XARELTO [Suspect]
     Active Substance: RIVAROXABAN
     Indication: PERIPHERAL SWELLING
     Route: 048

REACTIONS (4)
  - Electrocardiogram abnormal [Not Recovered/Not Resolved]
  - Heart rate irregular [Unknown]
  - Hypotension [Unknown]
  - Fibrin D dimer increased [Unknown]

NARRATIVE: CASE EVENT DATE: 20150709
